FAERS Safety Report 4568187-8 (Version None)
Quarter: 2005Q1

REPORT INFORMATION
  Report Type: 
  Country: None (occurrence: None)
  Receive Date: 20050128
  Receipt Date: 20041213
  Transmission Date: 20050727
  Serious: Yes (Disabling)
  Sender: FDA-Public Use
  Company Number: 805#1#2004-00035

PATIENT
  Age: 87 Year
  Sex: Female

DRUGS (13)
  1. ALPROSTADIL [Suspect]
     Indication: ATHEROSCLEROSIS OBLITERANS
     Dosage: 40 MCG (20MCG 2 IN 1 DAY(S)), INTRAVENOUS DRIP
     Route: 041
     Dates: start: 20041102, end: 20041122
  2. CILOSTAZOL [Suspect]
     Indication: ATHEROSCLEROSIS OBLITERANS
     Dosage: 200 MG, ORAL
     Route: 048
     Dates: start: 20041102, end: 20041122
  3. CEFAZOLIN SODIUM [Suspect]
     Indication: PNEUMONIA
     Dosage: 2 G, INTRAVENOUS DRIP
     Route: 041
     Dates: start: 20041031, end: 20041106
  4. SODIUM CHLORIDE [Suspect]
     Dosage: 200 ML (100 ML 2 IN 1 DAY(S), INTRAVENOUS DRIP
     Route: 041
     Dates: start: 20041102, end: 20041122
  5. SODIUM BICARBONATE IN PLASTIC CONTAINER [Suspect]
     Dosage: 40 ML (20 ML 2 IN 1 DAY(S), INTRAVENOUS DRIP
     Route: 041
     Dates: start: 20041102, end: 20041122
  6. LIMAPROST-ALFADEX (LIMAPROST) [Concomitant]
  7. LOSARTAN POTASSIUM [Concomitant]
  8. SENNOSIDE [Concomitant]
  9. PANCREATIC-DIGSTIVE-ENZYME (ENZYMES NOS) [Concomitant]
  10. PENTAZOCINE LACTATE [Concomitant]
  11. HYDROXYZINE-HYDROCHLORIDE (HYDRXYZINE HYDROCHLORIDE) [Concomitant]
  12. VALPROATE SODIUM [Concomitant]
  13. SPIRONOLACTONE [Concomitant]

REACTIONS (5)
  - ANAEMIA [None]
  - GENERALISED OEDEMA [None]
  - HYPOCHOLESTEROLAEMIA [None]
  - HYPOPROTEINAEMIA [None]
  - POST PROCEDURAL COMPLICATION [None]
